FAERS Safety Report 8586259-8 (Version None)
Quarter: 2012Q3

REPORT INFORMATION
  Report Type: 
  Country: None (occurrence: None)
  Receive Date: 20120810
  Receipt Date: 20120112
  Transmission Date: 20120928
  Serious: Yes (Hospitalization, Other)
  Sender: FDA-Public Use
  Company Number: US-ROCHE-1097575

PATIENT
  Age: 46 Year
  Sex: Female

DRUGS (1)
  1. ACTIVASE [Suspect]
     Indication: PRODUCT USED FOR UNKNOWN INDICATION

REACTIONS (5)
  - BLOOD POTASSIUM DECREASED [None]
  - VENTRICULAR TACHYCARDIA [None]
  - NAUSEA [None]
  - CHEST DISCOMFORT [None]
  - HOT FLUSH [None]
